FAERS Safety Report 4386435-4 (Version None)
Quarter: 2004Q2

REPORT INFORMATION
  Report Type: 
  Country: None (occurrence: None)
  Receive Date: 20040623
  Receipt Date: 20040610
  Transmission Date: 20050107
  Serious: Yes (Hospitalization, Other)
  Sender: FDA-Public Use
  Company Number: US-JNJFOC-20040201111

PATIENT
  Age: 41 Year
  Sex: Male

DRUGS (6)
  1. REMICADE [Suspect]
     Indication: CROHN'S DISEASE
     Dosage: INTRAVENOUS
     Route: 042
     Dates: start: 20030401, end: 20031126
  2. PREDNISONE TAB [Concomitant]
  3. MERCAPTOPURINE [Concomitant]
  4. PENTASA [Concomitant]
  5. DURAGESIC [Concomitant]
  6. SOLU-MEDROL (METHYLPREDNISONLONE SODIUM SUCCINATE) [Concomitant]

REACTIONS (32)
  - ABDOMINAL PAIN LOWER [None]
  - ANAEMIA [None]
  - BLADDER PERFORATION [None]
  - BLOOD ALBUMIN DECREASED [None]
  - CITROBACTER INFECTION [None]
  - CROHN'S DISEASE [None]
  - ENTEROBACTER INFECTION [None]
  - EPSTEIN-BARR VIRUS INFECTION [None]
  - FATIGUE [None]
  - GASTROOESOPHAGEAL REFLUX DISEASE [None]
  - HIATUS HERNIA [None]
  - INCISIONAL HERNIA [None]
  - INTESTINAL STENOSIS [None]
  - INTESTINAL ULCER [None]
  - LYMPHADENOPATHY [None]
  - LYMPHOMA [None]
  - LYMPHOPROLIFERATIVE DISORDER [None]
  - NEPHROLITHIASIS [None]
  - OEDEMA [None]
  - OESOPHAGITIS [None]
  - PELVIC ABSCESS [None]
  - PERINEAL FISTULA [None]
  - PLATELET COUNT INCREASED [None]
  - PLEURAL EFFUSION [None]
  - POSTOPERATIVE ABSCESS [None]
  - PROTEIN TOTAL DECREASED [None]
  - PSEUDOMONAS INFECTION [None]
  - RECTAL HAEMORRHAGE [None]
  - SPLENOMEGALY [None]
  - URINARY TRACT INFECTION PSEUDOMONAL [None]
  - VESICAL FISTULA [None]
  - WEIGHT DECREASED [None]
